FAERS Safety Report 20183117 (Version 2)
Quarter: 2021Q4

REPORT INFORMATION
  Report Type: Other
  Country: FR (occurrence: FR)
  Receive Date: 20211214
  Receipt Date: 20211217
  Transmission Date: 20220303
  Serious: Yes (Death)
  Sender: FDA-Public Use
  Company Number: FR-ROCHE-2980789

PATIENT
  Age: 73 Year
  Sex: Female
  Weight: 85 kg

DRUGS (15)
  1. REGEN-COV [Suspect]
     Active Substance: CASIRIVIMAB\IMDEVIMAB
     Indication: COVID-19 pneumonia
     Dosage: ONCE IN 2 HOUR
     Route: 042
     Dates: start: 20211123, end: 20211123
  2. VALIUM [Suspect]
     Active Substance: DIAZEPAM
     Indication: Anxiety
     Route: 042
     Dates: start: 20211121, end: 20211123
  3. AMISULPRIDE [Concomitant]
     Active Substance: AMISULPRIDE
  4. CARBAMAZEPINE [Concomitant]
     Active Substance: CARBAMAZEPINE
  5. BIPERIDEN [Concomitant]
     Active Substance: BIPERIDEN
  6. MONTMORILLONITE [Concomitant]
     Active Substance: MONTMORILLONITE
  7. CALCIUM;VITAMIN D3 [Concomitant]
  8. DICLOFENAC [Concomitant]
     Active Substance: DICLOFENAC
  9. ENOXAPARIN [Concomitant]
     Active Substance: ENOXAPARIN
  10. CHLORPROMAZINE [Concomitant]
     Active Substance: CHLORPROMAZINE
  11. IVERMECTIN [Concomitant]
     Active Substance: IVERMECTIN
     Dates: start: 20211123
  12. DEXAMETHASONE [Concomitant]
     Active Substance: DEXAMETHASONE
     Dates: start: 20211121
  13. ACETAMINOPHEN [Concomitant]
     Active Substance: ACETAMINOPHEN
     Dates: start: 20211121, end: 20211123
  14. POTASSIUM [Concomitant]
     Active Substance: POTASSIUM
     Route: 042
     Dates: start: 20211121
  15. POTASSIUM [Concomitant]
     Active Substance: POTASSIUM
     Dates: start: 20211123

REACTIONS (1)
  - Cardio-respiratory arrest [Fatal]

NARRATIVE: CASE EVENT DATE: 20211124
